FAERS Safety Report 5444869-0 (Version None)
Quarter: 2007Q3

REPORT INFORMATION
  Report Type: 
  Country: None (occurrence: None)
  Receive Date: 20070906
  Receipt Date: 20070829
  Transmission Date: 20080115
  Serious: Yes (Other)
  Sender: FDA-Public Use
  Company Number: FR-ROCHE-509667

PATIENT
  Age: 60 Year
  Sex: Female
  Weight: 70 kg

DRUGS (2)
  1. LARIAM [Suspect]
     Indication: MALARIA PROPHYLAXIS
     Route: 048
     Dates: start: 20070725
  2. ENGERIX-B [Suspect]
     Indication: HEPATITIS B IMMUNISATION
     Dosage: DRUG NAME REPORTED AS ENGERIX B 10. INDICATION REPORTED AS HEPATITIS B VACCINATION. THE PATIENT REC+
     Route: 030

REACTIONS (6)
  - ABDOMINAL PAIN [None]
  - C-REACTIVE PROTEIN INCREASED [None]
  - CYTOLYTIC HEPATITIS [None]
  - MYALGIA [None]
  - PYREXIA [None]
  - VOMITING [None]
